FAERS Safety Report 7410396-4 (Version None)
Quarter: 2011Q2

REPORT INFORMATION
  Report Type: 
  Country: None (occurrence: None)
  Receive Date: 20110412
  Receipt Date: 20110411
  Transmission Date: 20111010
  Serious: No
  Sender: FDA-Public Use
  Company Number: DE-MERCK-1103DEU00140

PATIENT
  Age: 78 Year
  Sex: Female

DRUGS (7)
  1. GINKGO [Concomitant]
     Route: 065
  2. COSOPT [Suspect]
     Indication: GLAUCOMA
     Route: 048
  3. HYALURONATE SODIUM [Concomitant]
     Indication: GLAUCOMA
     Route: 047
  4. ALLOPURINOL [Concomitant]
     Route: 065
  5. TAFLUPROST [Concomitant]
     Indication: GLAUCOMA
     Route: 047
  6. ASPIRIN [Concomitant]
     Route: 065
  7. AMLODIPINE BESYLATE [Concomitant]
     Route: 065

REACTIONS (1)
  - ECZEMA EYELIDS [None]
